FAERS Safety Report 6474891-7 (Version None)
Quarter: 2009Q4

REPORT INFORMATION
  Report Type: 
  Country: None (occurrence: None)
  Receive Date: 20091204
  Receipt Date: 20090401
  Transmission Date: 20100525
  Serious: Yes (Hospitalization, Other)
  Sender: FDA-Public Use
  Company Number: US-ELI_LILLY_AND_COMPANY-US200902004144

PATIENT
  Sex: Female

DRUGS (15)
  1. HUMALOG [Suspect]
     Dosage: 4 U, UNK
  2. GLIPIZIDE [Concomitant]
     Dosage: 10 MG, EACH MORNING
  3. GLIPIZIDE [Concomitant]
     Dosage: 5 MG, EACH EVENING
  4. GLIPIZIDE [Concomitant]
     Dosage: 5 MG, DAILY (1/D)
  5. METFORMIN HCL [Concomitant]
     Dosage: 1000 MG, 2/D
  6. COMBIVENT [Concomitant]
     Dosage: UNK, AS NEEDED
  7. ACTOS [Concomitant]
     Dosage: 30 MG, DAILY (1/D)
  8. AVAPRO [Concomitant]
     Dosage: 300 MG, DAILY (1/D)
  9. FLONASE [Concomitant]
     Dosage: UNK, DAILY (1/D)
  10. NEXIUM [Concomitant]
     Dosage: 40 MG, DAILY (1/D)
  11. NEXIUM [Concomitant]
     Dosage: 40 MG, 2/D
     Dates: start: 20090201
  12. COREG [Concomitant]
     Dosage: 25 MG, 2/D
  13. NORVASC [Concomitant]
     Dosage: 5 MG, DAILY (1/D)
  14. ALBUTEROL [Concomitant]
     Dosage: UNK, AS NEEDED
  15. CLINDAMYCIN [Concomitant]
     Indication: SINUSITIS

REACTIONS (11)
  - BLOOD GLUCOSE INCREASED [None]
  - CONFUSIONAL STATE [None]
  - CONVULSION [None]
  - DIABETIC COMA [None]
  - DIZZINESS [None]
  - ECCHYMOSIS [None]
  - GAIT DISTURBANCE [None]
  - GLOSSODYNIA [None]
  - HYPERHIDROSIS [None]
  - INAPPROPRIATE AFFECT [None]
  - INCORRECT DOSE ADMINISTERED [None]
